FAERS Safety Report 4570257-5 (Version None)
Quarter: 2005Q1

REPORT INFORMATION
  Report Type: 
  Country: None (occurrence: None)
  Receive Date: 20050204
  Receipt Date: 20050120
  Transmission Date: 20050727
  Serious: Yes (Hospitalization, Other)
  Sender: FDA-Public Use
  Company Number: PHBS2005NL01212

PATIENT
  Age: 63 Year
  Sex: Male

DRUGS (3)
  1. EXELON [Suspect]
     Indication: DEMENTIA ALZHEIMER'S TYPE
     Dosage: UNK, UNK
     Route: 048
     Dates: start: 20050101
  2. EXELON [Suspect]
     Dosage: 3 MG, BID
     Dates: start: 20041006, end: 20041229
  3. ACETYLSALICYLZUUR [Concomitant]
     Indication: CEREBROVASCULAR ACCIDENT
     Route: 065

REACTIONS (1)
  - MALIGNANT HYPERTENSION [None]
